FAERS Safety Report 17213241 (Version 1)
Quarter: 2019Q4

REPORT INFORMATION
  Report Type: Spontaneous
  Country: US (occurrence: US)
  Receive Date: 20191230
  Receipt Date: 20191230
  Transmission Date: 20200122
  Serious: Yes (Hospitalization, Other)
  Sender: FDA-Public Use
  Company Number: US-CHIESI USA, INC.-US-2019CHI000503

PATIENT

DRUGS (24)
  1. CETIRIZINE [Concomitant]
     Active Substance: CETIRIZINE HYDROCHLORIDE
     Indication: CYSTIC FIBROSIS
     Dosage: UNK
  2. OMEPRAZOLE. [Concomitant]
     Active Substance: OMEPRAZOLE
     Indication: CYSTIC FIBROSIS
     Dosage: UNK
  3. BETHKIS [Suspect]
     Active Substance: TOBRAMYCIN
     Indication: CYSTIC FIBROSIS
     Dosage: 1 DF, BID
     Route: 055
     Dates: start: 20191121
  4. IBUPROFEN. [Concomitant]
     Active Substance: IBUPROFEN
     Indication: INFECTIVE PULMONARY EXACERBATION OF CYSTIC FIBROSIS
  5. MAG OXIDE [Concomitant]
     Active Substance: MAGNESIUM OXIDE
     Indication: INFECTIVE PULMONARY EXACERBATION OF CYSTIC FIBROSIS
  6. MONTELUKAST [Concomitant]
     Active Substance: MONTELUKAST SODIUM
     Indication: CYSTIC FIBROSIS
     Dosage: UNK
  7. BETHKIS [Suspect]
     Active Substance: TOBRAMYCIN
     Indication: INFECTIVE PULMONARY EXACERBATION OF CYSTIC FIBROSIS
  8. LANTUS [Concomitant]
     Active Substance: INSULIN GLARGINE
     Indication: INFECTIVE PULMONARY EXACERBATION OF CYSTIC FIBROSIS
  9. MAG OXIDE [Concomitant]
     Active Substance: MAGNESIUM OXIDE
     Indication: CYSTIC FIBROSIS
     Dosage: UNK
  10. MAGNESIUM [Concomitant]
     Active Substance: MAGNESIUM
     Indication: INFECTIVE PULMONARY EXACERBATION OF CYSTIC FIBROSIS
  11. MONTELUKAST [Concomitant]
     Active Substance: MONTELUKAST SODIUM
     Indication: INFECTIVE PULMONARY EXACERBATION OF CYSTIC FIBROSIS
  12. PULMOZYME [Concomitant]
     Active Substance: DORNASE ALFA
     Indication: CYSTIC FIBROSIS
     Dosage: UNK
  13. PULMOZYME [Concomitant]
     Active Substance: DORNASE ALFA
     Indication: INFECTIVE PULMONARY EXACERBATION OF CYSTIC FIBROSIS
  14. IBUPROFEN. [Concomitant]
     Active Substance: IBUPROFEN
     Indication: CYSTIC FIBROSIS
     Dosage: UNK
  15. OMEPRAZOLE. [Concomitant]
     Active Substance: OMEPRAZOLE
     Indication: INFECTIVE PULMONARY EXACERBATION OF CYSTIC FIBROSIS
  16. URSODIOL. [Concomitant]
     Active Substance: URSODIOL
     Indication: CYSTIC FIBROSIS
     Dosage: UNK
  17. CETIRIZINE [Concomitant]
     Active Substance: CETIRIZINE HYDROCHLORIDE
     Indication: INFECTIVE PULMONARY EXACERBATION OF CYSTIC FIBROSIS
  18. LANTUS [Concomitant]
     Active Substance: INSULIN GLARGINE
     Indication: CYSTIC FIBROSIS
     Dosage: UNK
  19. MAGNESIUM [Concomitant]
     Active Substance: MAGNESIUM
     Indication: CYSTIC FIBROSIS
     Dosage: UNK
  20. NIFEDIPINE. [Concomitant]
     Active Substance: NIFEDIPINE
     Indication: CYSTIC FIBROSIS
     Dosage: UNK
  21. URSODIOL. [Concomitant]
     Active Substance: URSODIOL
     Indication: INFECTIVE PULMONARY EXACERBATION OF CYSTIC FIBROSIS
  22. ADMELOG [Concomitant]
     Active Substance: INSULIN LISPRO
     Indication: INFECTIVE PULMONARY EXACERBATION OF CYSTIC FIBROSIS
  23. ADMELOG [Concomitant]
     Active Substance: INSULIN LISPRO
     Indication: CYSTIC FIBROSIS
     Dosage: UNK
  24. NIFEDIPINE. [Concomitant]
     Active Substance: NIFEDIPINE
     Indication: INFECTIVE PULMONARY EXACERBATION OF CYSTIC FIBROSIS

REACTIONS (3)
  - Product dose omission [Unknown]
  - Haemoptysis [Unknown]
  - Liver transplant [Unknown]

NARRATIVE: CASE EVENT DATE: 20191121
